FAERS Safety Report 18019860 (Version 7)
Quarter: 2023Q2

REPORT INFORMATION
  Report Type: Spontaneous
  Country: US (occurrence: US)
  Receive Date: 20200714
  Receipt Date: 20230609
  Transmission Date: 20230722
  Serious: No
  Sender: FDA-Public Use
  Company Number: US-PFIZER INC-2020267315

PATIENT
  Age: 70 Year
  Sex: Female
  Weight: 81.633 kg

DRUGS (4)
  1. XELJANZ [Suspect]
     Active Substance: TOFACITINIB CITRATE
     Indication: Rheumatoid arthritis
     Dosage: 1 DF
     Route: 048
  2. XELJANZ [Suspect]
     Active Substance: TOFACITINIB CITRATE
     Dosage: 5 MG, 2X/DAY (BID; 60 TABLETS)
     Route: 048
  3. XELJANZ [Suspect]
     Active Substance: TOFACITINIB CITRATE
     Dosage: 5 MG, DAILY  (QD; 30 TABLETS, 60 TABLETS FOR PATIENT ASSISTANCE PROGRAM)
     Route: 048
  4. LOSARTAN [Concomitant]
     Active Substance: LOSARTAN
     Indication: Hypertension
     Dosage: 100 MG, 1X/DAY
     Route: 048

REACTIONS (15)
  - Musculoskeletal stiffness [Unknown]
  - Joint stiffness [Unknown]
  - Tremor [Unknown]
  - Dysgraphia [Unknown]
  - Herpes zoster [Unknown]
  - Pruritus [Unknown]
  - Pain [Unknown]
  - Sinusitis [Unknown]
  - Arthropod bite [Unknown]
  - Rash papular [Unknown]
  - Intentional product misuse [Unknown]
  - Hypertension [Unknown]
  - Body height decreased [Unknown]
  - Blood sodium decreased [Unknown]
  - Off label use [Unknown]

NARRATIVE: CASE EVENT DATE: 20230401
